FAERS Safety Report 9513645 (Version 1)
Quarter: 2013Q3

REPORT INFORMATION
  Report Type: Spontaneous
  Country: IT (occurrence: IT)
  Receive Date: 20130910
  Receipt Date: 20130910
  Transmission Date: 20140515
  Serious: Yes (Death, Other)
  Sender: FDA-Public Use
  Company Number: IT-TEVA-430605ISR

PATIENT
  Age: 51 Year
  Sex: Female
  Weight: 69 kg

DRUGS (4)
  1. FLUOROURACILE [Suspect]
     Indication: COLORECTAL CANCER METASTATIC
     Dosage: 483MG, CYCLICAL
     Route: 042
     Dates: start: 20130320, end: 20130417
  2. FLUOROURACILE [Suspect]
     Dosage: 2898MG, CYCLICAL
     Route: 042
     Dates: start: 20130320, end: 20130417
  3. AVASTIN [Suspect]
     Indication: COLORECTAL CANCER METASTATIC
     Dosage: 295MG, CYCLICAL
     Route: 042
     Dates: start: 20130415, end: 20130415
  4. IRINOTECAN [Suspect]
     Indication: COLORECTAL CANCER METASTATIC
     Dosage: 217MG, CYCLICAL
     Route: 042
     Dates: start: 20130320, end: 20130415

REACTIONS (6)
  - Cardiac arrest [Fatal]
  - Coma [Unknown]
  - Loss of consciousness [Unknown]
  - Sopor [Unknown]
  - Diarrhoea [Unknown]
  - Vomiting [Unknown]
